FAERS Safety Report 7251305-0 (Version None)
Quarter: 2011Q1

REPORT INFORMATION
  Report Type: 
  Country: None (occurrence: None)
  Receive Date: 20110128
  Receipt Date: 20110124
  Transmission Date: 20110831
  Serious: Yes (Hospitalization)
  Sender: FDA-Public Use
  Company Number: FR-GENZYME-CAMP-1000220

PATIENT
  Sex: Female
  Weight: 44 kg

DRUGS (15)
  1. AMITRIPTYLINE HCL [Concomitant]
     Indication: DEPRESSION
     Dosage: 3 MG, QD
     Route: 048
  2. EPOGEN [Concomitant]
     Dosage: UNK U, UNK
     Route: 065
     Dates: start: 20070601, end: 20070801
  3. BACTRIM [Concomitant]
     Indication: PROPHYLAXIS
     Dosage: 160 MG, UNK
     Route: 048
     Dates: start: 20090130
  4. CHLORAMBUCIL [Concomitant]
     Indication: CHRONIC LYMPHOCYTIC LEUKAEMIA
     Dosage: UNK UNK, UNK
     Route: 065
     Dates: start: 20060613, end: 20071122
  5. EPOGEN [Concomitant]
     Indication: CHRONIC LYMPHOCYTIC LEUKAEMIA
     Dosage: UNK UNK, UNK
     Route: 065
     Dates: start: 20060601, end: 20060901
  6. CHLORAMBUCIL [Concomitant]
     Dosage: UNK UNK, UNK
     Route: 065
     Dates: start: 20080528, end: 20081001
  7. IMMUNE GLOBULIN NOS [Concomitant]
     Indication: PROPHYLAXIS
     Dosage: 20 G, QD
     Route: 042
     Dates: start: 20080218, end: 20081222
  8. CAMPATH [Suspect]
     Dosage: 30 MG, QOD
     Route: 058
     Dates: start: 20090225
  9. ZELITREX [Concomitant]
     Indication: PROPHYLAXIS
     Dosage: 500 MG, BID
     Route: 048
  10. FLUDARA [Concomitant]
     Indication: CHRONIC LYMPHOCYTIC LEUKAEMIA
     Dosage: UNK, 3 CYCLES
     Route: 065
     Dates: start: 20050215, end: 20050413
  11. CYCLOPHOSPHAMIDE [Concomitant]
     Indication: CHRONIC LYMPHOCYTIC LEUKAEMIA
     Dosage: UNK UNK, UNK, 3 CYCLES
     Route: 065
     Dates: start: 20050215, end: 20050413
  12. EPOGEN [Concomitant]
     Dosage: UNK UNK, UNK
     Route: 065
     Dates: start: 20080528, end: 20081001
  13. CAMPATH [Suspect]
     Indication: CHRONIC LYMPHOCYTIC LEUKAEMIA
     Dosage: 30 MG, QOD
     Route: 058
     Dates: start: 20090216, end: 20090218
  14. SANDOGLOBULIN [Concomitant]
     Indication: PROPHYLAXIS
     Dosage: 20 G, ONCE
     Route: 042
     Dates: start: 20090210, end: 20090210
  15. CLONAZEPAM [Concomitant]
     Indication: DEPRESSION
     Dosage: 0.3 MG, QD
     Route: 048

REACTIONS (2)
  - BONE MARROW FAILURE [None]
  - ASTHENIA [None]
